FAERS Safety Report 22646276 (Version 1)
Quarter: 2023Q2

REPORT INFORMATION
  Report Type: Spontaneous
  Country: CA (occurrence: CA)
  Receive Date: 20230627
  Receipt Date: 20230627
  Transmission Date: 20230721
  Serious: Yes (Other)
  Sender: FDA-Public Use
  Company Number: CA-FreseniusKabi-FK202309259

PATIENT
  Age: 69 Year
  Sex: Male

DRUGS (1)
  1. FLUMAZENIL [Suspect]
     Active Substance: FLUMAZENIL
     Indication: Endoscopy upper gastrointestinal tract
     Route: 041

REACTIONS (1)
  - Unresponsive to stimuli [Unknown]
